FAERS Safety Report 4862142-6 (Version None)
Quarter: 2005Q4

REPORT INFORMATION
  Report Type: 
  Country: None (occurrence: None)
  Receive Date: 20051201
  Receipt Date: 20050814
  Transmission Date: 20060501
  Serious: No
  Sender: FDA-Public Use
  Company Number: 2005PV001200

PATIENT
  Age: 63 Year
  Sex: Male
  Weight: 109.7705 kg

DRUGS (7)
  1. BYETTA [Suspect]
     Indication: DIABETES MELLITUS NON-INSULIN-DEPENDENT
     Dosage: 5 MCG, BID, SC
     Route: 058
     Dates: start: 20050701
  2. ACTOS [Concomitant]
  3. GLUCOPHAGE [Concomitant]
  4. ZESTORETIC [Concomitant]
  5. DOXAZOSIN [Concomitant]
  6. NORVASC [Concomitant]
  7. GLUCOTROL [Concomitant]

REACTIONS (2)
  - DRUG EFFECT DECREASED [None]
  - WEIGHT DECREASED [None]
